FAERS Safety Report 14585816 (Version 1)
Quarter: 2018Q1

REPORT INFORMATION
  Report Type: Spontaneous
  Country: RU (occurrence: RU)
  Receive Date: 20180301
  Receipt Date: 20180301
  Transmission Date: 20180509
  Serious: Yes (Death)
  Sender: FDA-Public Use
  Company Number: RU-EISAI MEDICAL RESEARCH-EC-2018-036638

PATIENT
  Age: 2 Year
  Sex: Female

DRUGS (8)
  1. DEPAKINE [Concomitant]
     Active Substance: VALPROATE SODIUM
     Dosage: UNKNOWN (DOWN-TITRATION)
     Route: 065
     Dates: start: 2017, end: 2017
  2. FYCOMPA [Suspect]
     Active Substance: PERAMPANEL
     Indication: PARTIAL SEIZURES
     Route: 048
     Dates: start: 2017, end: 2017
  3. DEPAKINE [Concomitant]
     Active Substance: VALPROATE SODIUM
     Indication: PARTIAL SEIZURES
     Route: 065
     Dates: start: 2017, end: 2017
  4. FYCOMPA [Suspect]
     Active Substance: PERAMPANEL
     Route: 048
     Dates: start: 2017, end: 2017
  5. FYCOMPA [Suspect]
     Active Substance: PERAMPANEL
     Route: 048
     Dates: start: 2017, end: 2017
  6. FYCOMPA [Suspect]
     Active Substance: PERAMPANEL
     Route: 048
     Dates: start: 2017, end: 20180208
  7. CEFTRIAXONE. [Concomitant]
     Active Substance: CEFTRIAXONE
     Indication: ANTIBIOTIC PROPHYLAXIS
     Dosage: UNKNOWN
     Route: 065
  8. DEPAKINE [Concomitant]
     Active Substance: VALPROATE SODIUM
     Route: 065
     Dates: start: 2017, end: 2017

REACTIONS (1)
  - Disseminated intravascular coagulation [Fatal]

NARRATIVE: CASE EVENT DATE: 20180208
